FAERS Safety Report 11513978 (Version 1)
Quarter: 2015Q3

REPORT INFORMATION
  Report Type: Report from Study
  Country: US (occurrence: US)
  Receive Date: 20150916
  Receipt Date: 20150916
  Transmission Date: 20151125
  Serious: Yes (Death, Other)
  Sender: FDA-Public Use
  Company Number: US-SA-2015SA140293

PATIENT

DRUGS (4)
  1. BUSULFAN [Suspect]
     Active Substance: BUSULFAN
     Indication: HAEMATOLOGICAL MALIGNANCY
     Dosage: INFUSION OVER 2 HOURS BETWEEN DAYS -15 AND -10
     Route: 065
  2. TACROLIMUS. [Concomitant]
     Active Substance: TACROLIMUS
     Indication: PROPHYLAXIS AGAINST GRAFT VERSUS HOST DISEASE
     Dosage: DAY -1 TO DAY +120 AND THEN TAPER BY DAY +180
     Route: 048
  3. BUSULFAN [Suspect]
     Active Substance: BUSULFAN
     Indication: HAEMATOLOGICAL MALIGNANCY
     Dosage: CONTINOUS I.V INFUSION OVER 90 HOURS ON DAYS -7 TO -4
     Route: 042
  4. FLUDARABINE PHOSPHATE. [Suspect]
     Active Substance: FLUDARABINE PHOSPHATE
     Indication: HAEMATOLOGICAL MALIGNANCY
     Dosage: 30 MG/M2/DAY X 5 DAYS I.V INFUSION OVER 30 MINUTES ON DAYS -7 THROUGH -3
     Route: 042

REACTIONS (4)
  - Hepatic failure [Fatal]
  - Venoocclusive disease [Unknown]
  - Sepsis [Fatal]
  - Multi-organ failure [Fatal]
